FAERS Safety Report 8844577 (Version 2)
Quarter: 2012Q4

REPORT INFORMATION
  Report Type: Spontaneous
  Country: MX (occurrence: None)
  Receive Date: 20121012
  Receipt Date: 20121101
  Transmission Date: 20130627
  Serious: Yes (Other)
  Sender: FDA-Public Use
  Company Number: THQ2012A08927

PATIENT
  Age: 54 Year
  Sex: Female

DRUGS (1)
  1. COMPETACT [Suspect]
     Indication: PRODUCT USED FOR UNKNOWN INDICATION
     Route: 048
     Dates: start: 2009

REACTIONS (2)
  - Colon cancer [None]
  - Bladder cancer [None]
